FAERS Safety Report 6209062-2 (Version None)
Quarter: 2009Q2

REPORT INFORMATION
  Report Type: 
  Country: None (occurrence: None)
  Receive Date: 20090529
  Receipt Date: 20090525
  Transmission Date: 20091009
  Serious: Yes (Death, Other)
  Sender: FDA-Public Use
  Company Number: PHHY2009US20635

PATIENT
  Age: 55 Year
  Sex: Male

DRUGS (3)
  1. ZOLEDRONIC ACID [Suspect]
     Indication: SALIVARY GLAND CANCER
  2. CHEMOTHERAPEUTICS NOS [Concomitant]
  3. RADIOTHERAPY [Concomitant]

REACTIONS (6)
  - BONE DISORDER [None]
  - DEBRIDEMENT [None]
  - DISEASE PROGRESSION [None]
  - OSTEONECROSIS [None]
  - SURGERY [None]
  - WOUND DEHISCENCE [None]
